FAERS Safety Report 6283786-3 (Version None)
Quarter: 2009Q3

REPORT INFORMATION
  Report Type: 
  Country: None (occurrence: None)
  Receive Date: 20090724
  Receipt Date: 20090720
  Transmission Date: 20100115
  Serious: Yes (Other)
  Sender: FDA-Public Use
  Company Number: US-ASTRAZENECA-2005UW18429

PATIENT
  Age: 72 Year
  Sex: Female

DRUGS (4)
  1. IRESSA [Suspect]
     Indication: LUNG NEOPLASM MALIGNANT
     Route: 048
     Dates: start: 20040101, end: 20051101
  2. IRESSA [Suspect]
     Route: 048
  3. VITAMINS [Concomitant]
  4. Z-PAK [Concomitant]

REACTIONS (6)
  - ACNE [None]
  - COUGH [None]
  - DYSPHONIA [None]
  - EYE PAIN [None]
  - RASH [None]
  - RENAL DISORDER [None]
